FAERS Safety Report 8365425-0 (Version None)
Quarter: 2012Q2

REPORT INFORMATION
  Report Type: 
  Country: None (occurrence: None)
  Receive Date: 20120516
  Receipt Date: 20120514
  Transmission Date: 20120825
  Serious: Yes (Hospitalization)
  Sender: FDA-Public Use
  Company Number: US-ROCHE-1020316

PATIENT
  Sex: Male

DRUGS (1)
  1. ZELBORAF [Suspect]
     Indication: MALIGNANT MELANOMA
     Route: 048
     Dates: start: 20111001

REACTIONS (6)
  - NEUROPATHY PERIPHERAL [None]
  - ARTHRALGIA [None]
  - HYPOAESTHESIA [None]
  - SWELLING [None]
  - OEDEMA [None]
  - PERIPHERAL COLDNESS [None]
